FAERS Safety Report 18950740 (Version 1)
Quarter: 2021Q1

REPORT INFORMATION
  Report Type: Spontaneous
  Country: US (occurrence: US)
  Receive Date: 20210228
  Receipt Date: 20210228
  Transmission Date: 20210420
  Serious: No
  Sender: FDA-Public Use
  Company Number: US-ROCHE-2731857

PATIENT
  Sex: Female

DRUGS (22)
  1. XOLAIR [Suspect]
     Active Substance: OMALIZUMAB
     Indication: ASTHMA
     Dosage: INJECT 225 MG SUBCUTANEOUSLY EVERY 2 WEEK(S)
     Route: 058
  2. HYDROCODONE [Concomitant]
     Active Substance: HYDROCODONE
  3. HYDROCHLOROTHIAZIDE. [Concomitant]
     Active Substance: HYDROCHLOROTHIAZIDE
  4. XOLAIR [Suspect]
     Active Substance: OMALIZUMAB
     Indication: ASTHMA
     Dosage: INJECT 225MG SUBCUTANEOUSLY EVERY 2 WEEK(S)
     Route: 058
  5. TRELEGY ELLIPTA [Concomitant]
     Active Substance: FLUTICASONE FUROATE\UMECLIDINIUM BROMIDE\VILANTEROL TRIFENATATE
  6. ESCITALOPRAM OXALATE. [Concomitant]
     Active Substance: ESCITALOPRAM OXALATE
  7. XOLAIR [Suspect]
     Active Substance: OMALIZUMAB
  8. XOLAIR [Suspect]
     Active Substance: OMALIZUMAB
  9. XOLAIR [Suspect]
     Active Substance: OMALIZUMAB
  10. ACETAMINOPHEN. [Concomitant]
     Active Substance: ACETAMINOPHEN
  11. ASPIRIN. [Concomitant]
     Active Substance: ASPIRIN
  12. XOLAIR [Suspect]
     Active Substance: OMALIZUMAB
  13. ALBUTEROL SULFATE. [Concomitant]
     Active Substance: ALBUTEROL SULFATE
  14. CIPRO [Concomitant]
     Active Substance: CIPROFLOXACIN HYDROCHLORIDE
  15. XOLAIR [Suspect]
     Active Substance: OMALIZUMAB
  16. XOLAIR [Suspect]
     Active Substance: OMALIZUMAB
     Indication: HYPERSENSITIVITY
  17. ALPRAZOLAM. [Concomitant]
     Active Substance: ALPRAZOLAM
  18. PERCOCET [Concomitant]
     Active Substance: ACETAMINOPHEN\OXYCODONE HYDROCHLORIDE
     Dosage: 10?325 MG
  19. SINGULAIR [Concomitant]
     Active Substance: MONTELUKAST SODIUM
  20. XOLAIR [Suspect]
     Active Substance: OMALIZUMAB
  21. FLUTICASONE. [Concomitant]
     Active Substance: FLUTICASONE
  22. LISINOPRIL. [Concomitant]
     Active Substance: LISINOPRIL

REACTIONS (2)
  - Drug ineffective [Unknown]
  - No adverse event [Unknown]
